FAERS Safety Report 18442609 (Version 6)
Quarter: 2021Q4

REPORT INFORMATION
  Report Type: Report from Study
  Country: US (occurrence: US)
  Receive Date: 20201029
  Receipt Date: 20211229
  Transmission Date: 20220303
  Serious: Yes (Hospitalization, Other)
  Sender: FDA-Public Use
  Company Number: NVSC2020US287008

PATIENT
  Age: 4 Month
  Sex: Female
  Weight: 9.5 kg

DRUGS (4)
  1. ZOLGENSMA [Suspect]
     Active Substance: ONASEMNOGENE ABEPARVOVEC-XIOI
     Indication: Spinal muscular atrophy
     Dosage: 30.3 ML
     Route: 042
     Dates: start: 20200729, end: 20200729
  2. PREDNISOLONE [Concomitant]
     Active Substance: PREDNISOLONE
     Indication: Product used for unknown indication
     Dosage: 6 MG, QD
     Route: 065
     Dates: start: 20200727, end: 20200912
  3. PREDNISOLONE [Concomitant]
     Active Substance: PREDNISOLONE
     Dosage: 12 MG, QD
     Route: 065
     Dates: start: 20200912, end: 20201015
  4. PREDNISOLONE [Concomitant]
     Active Substance: PREDNISOLONE
     Dosage: 9 MG, QD
     Route: 065
     Dates: start: 20201015

REACTIONS (10)
  - Hepatotoxicity [Recovered/Resolved]
  - Troponin increased [Recovered/Resolved]
  - Coronavirus infection [Recovered/Resolved]
  - Pyrexia [Not Recovered/Not Resolved]
  - Nasal congestion [Unknown]
  - Cough [Recovering/Resolving]
  - Nausea [Recovered/Resolved]
  - Muscular weakness [Unknown]
  - Dysphagia [Unknown]
  - Hypophagia [Unknown]

NARRATIVE: CASE EVENT DATE: 20200909
